FAERS Safety Report 10025463 (Version 2)
Quarter: 2014Q2

REPORT INFORMATION
  Report Type: Spontaneous
  Country: US (occurrence: US)
  Receive Date: 20140320
  Receipt Date: 20140404
  Transmission Date: 20141212
  Serious: No
  Sender: FDA-Public Use
  Company Number: US-BAYER-2014-033869

PATIENT
  Age: 80 Year
  Sex: Female

DRUGS (5)
  1. CLIMARA [Suspect]
     Indication: HOT FLUSH
     Route: 062
  2. THEOPHYLLIN [Concomitant]
     Dosage: 200 MG, QD
     Route: 048
  3. SYNTHROID [Concomitant]
     Dosage: 75 ?G, QD
     Route: 048
  4. ATORVASTATIN [Concomitant]
     Dosage: 20 MG, QD
     Route: 048
  5. AMLODIPINE [Concomitant]
     Dosage: 10 MG, QD
     Route: 048

REACTIONS (1)
  - Drug ineffective [None]
